FAERS Safety Report 5871958-9 (Version None)
Quarter: 2008Q3

REPORT INFORMATION
  Report Type: 
  Country: None (occurrence: None)
  Receive Date: 20080905
  Receipt Date: 20080902
  Transmission Date: 20090109
  Serious: Yes (Death, Life-Threatening, Hospitalization)
  Sender: FDA-Public Use
  Company Number: JP-JNJFOC-20080602804

PATIENT
  Age: 78 Year
  Sex: Female
  Weight: 45 kg

DRUGS (8)
  1. DUROTEP [Suspect]
     Indication: MULTIPLE MYELOMA
     Route: 062
  2. GEBEN [Concomitant]
     Indication: DECUBITUS ULCER
     Route: 061
  3. ATARAX [Concomitant]
     Indication: PRURITUS
     Route: 048
  4. ZADITEN [Concomitant]
     Indication: PRURITUS
     Route: 048
  5. COTRIM [Concomitant]
     Route: 048
  6. MOBIC [Concomitant]
     Indication: MULTIPLE MYELOMA
     Route: 048
  7. MONILAC [Concomitant]
     Route: 048
  8. LAXOBERON [Concomitant]
     Indication: CONSTIPATION
     Route: 048

REACTIONS (3)
  - ALTERED STATE OF CONSCIOUSNESS [None]
  - PNEUMONIA [None]
  - RENAL FAILURE [None]
